FAERS Safety Report 4337815-4 (Version None)
Quarter: 2004Q2

REPORT INFORMATION
  Report Type: 
  Country: None (occurrence: None)
  Receive Date: 20040413
  Receipt Date: 20040319
  Transmission Date: 20050107
  Serious: Yes (Disabling)
  Sender: FDA-Public Use
  Company Number: PHRM2004FR01337

PATIENT
  Age: 18 Year
  Sex: Female
  Weight: 62 kg

DRUGS (3)
  1. LESCOL [Suspect]
     Indication: HYPERCHOLESTEROLAEMIA
     Dosage: 20 MG/DAY
     Route: 048
     Dates: start: 20040124, end: 20040219
  2. LESCOL [Suspect]
     Dosage: 80 MG/DAY
     Route: 048
     Dates: start: 20040220, end: 20040318
  3. MOXIFLOXACIN [Suspect]
     Indication: SINUSITIS
     Dosage: 400 MG/DAY
     Dates: start: 20040122, end: 20040127

REACTIONS (5)
  - DIFFICULTY IN WALKING [None]
  - LOCALISED OEDEMA [None]
  - SINUSITIS [None]
  - TENDON DISORDER [None]
  - TENDONITIS [None]
